FAERS Safety Report 12452960 (Version 1)
Quarter: 2016Q2

REPORT INFORMATION
  Report Type: Spontaneous
  Country: US (occurrence: US)
  Receive Date: 20160609
  Receipt Date: 20160609
  Transmission Date: 20160815
  Serious: No
  Sender: FDA-Public Use
  Company Number: US-PFIZER INC-2016266764

PATIENT
  Age: 53 Year
  Sex: Male

DRUGS (3)
  1. LYRICA [Suspect]
     Active Substance: PREGABALIN
     Dosage: 400 MG, 3X/DAY
  2. LYRICA [Suspect]
     Active Substance: PREGABALIN
     Indication: NEURALGIA
     Dosage: 200 MG, 3X/DAY
  3. ZONEGRAN [Concomitant]
     Active Substance: ZONISAMIDE
     Dosage: UNK

REACTIONS (8)
  - Drug ineffective [Unknown]
  - Drug withdrawal syndrome [Unknown]
  - Arthropod sting [Unknown]
  - Spinal disorder [Unknown]
  - Impaired work ability [Unknown]
  - Burning sensation [Unknown]
  - Overdose [Unknown]
  - Pain [Unknown]
